FAERS Safety Report 9108418 (Version 3)
Quarter: 2013Q2

REPORT INFORMATION
  Report Type: Spontaneous
  Country: US (occurrence: US)
  Receive Date: 20130222
  Receipt Date: 20130418
  Transmission Date: 20140414
  Serious: Yes (Life-Threatening, Hospitalization, Other)
  Sender: FDA-Public Use
  Company Number: US-B.I. PHARMACEUTICALS,INC./RIDGEFIELD-2013-BI-04347BP

PATIENT
  Age: 57 Year
  Sex: Male
  Weight: 105.69 kg

DRUGS (2)
  1. PRADAXA [Suspect]
     Indication: ATRIAL FIBRILLATION
     Dosage: 300 MG
     Route: 048
     Dates: start: 20111117, end: 20130117
  2. XARELTO [Suspect]
     Indication: ATRIAL FIBRILLATION
     Dates: start: 20130117, end: 20130210

REACTIONS (1)
  - Embolic stroke [Recovered/Resolved]
